FAERS Safety Report 23568868 (Version 1)
Quarter: 2024Q1

REPORT INFORMATION
  Report Type: Report from Study
  Country: US (occurrence: US)
  Receive Date: 20240227
  Receipt Date: 20240227
  Transmission Date: 20240410
  Serious: No
  Sender: FDA-Public Use
  Company Number: US-ORG100014127-2023000143

PATIENT
  Age: 58 Year
  Sex: Female

DRUGS (9)
  1. METOPIRONE [Suspect]
     Active Substance: METYRAPONE
     Indication: Ectopic ACTH syndrome
     Dosage: 250 MG: TAKE 1 CAPSULE BY MOUTH EVERY 6 HOURS
     Dates: start: 20220524
  2. Celexa Tab 40mg [Concomitant]
     Indication: Product used for unknown indication
  3. Folic Acid Tab 400 mcg [Concomitant]
     Indication: Product used for unknown indication
  4. GABAPENTIN [Concomitant]
     Active Substance: GABAPENTIN
     Indication: Product used for unknown indication
  5. Lorazepam Tab 0.5mg [Concomitant]
     Indication: Product used for unknown indication
  6. Metoprolol succ tab 100mg er [Concomitant]
     Indication: Product used for unknown indication
  7. Thioridazine Tab 25mg [Concomitant]
     Indication: Product used for unknown indication
  8. Tylenol Tab 500mg [Concomitant]
     Indication: Product used for unknown indication
  9. WARFARIN [Concomitant]
     Active Substance: WARFARIN
     Indication: Product used for unknown indication

REACTIONS (1)
  - Off label use [Unknown]

NARRATIVE: CASE EVENT DATE: 20220524
